FAERS Safety Report 20279316 (Version 1)
Quarter: 2022Q1

REPORT INFORMATION
  Report Type: Spontaneous
  Country: SG (occurrence: SG)
  Receive Date: 20220103
  Receipt Date: 20220103
  Transmission Date: 20220423
  Serious: Yes (Other)
  Sender: FDA-Public Use
  Company Number: SG-ALVOGEN-2021-ALVOGEN-118030

PATIENT
  Age: 67 Year
  Sex: Female

DRUGS (1)
  1. LEVOTHYROXINE [Suspect]
     Active Substance: LEVOTHYROXINE
     Indication: Autoimmune thyroiditis
     Dosage: STARTED 12.5 ON FOR 1 MONTH FOLLOWED BY 25 ON
     Dates: start: 201107

REACTIONS (1)
  - Marine Lenhart syndrome [Unknown]
